FAERS Safety Report 9242817 (Version 1)
Quarter: 2013Q2

REPORT INFORMATION
  Report Type: Spontaneous
  Country: CN (occurrence: CN)
  Receive Date: 20130419
  Receipt Date: 20130419
  Transmission Date: 20140414
  Serious: Yes (Other)
  Sender: FDA-Public Use
  Company Number: CN-JNJFOC-20130408042

PATIENT
  Sex: 0

DRUGS (1)
  1. REMICADE [Suspect]
     Indication: ANKYLOSING SPONDYLITIS
     Dosage: 0,2,6 AND 6 WEEKS
     Route: 042

REACTIONS (1)
  - Iridocyclitis [Unknown]
